FAERS Safety Report 17339628 (Version 1)
Quarter: 2020Q1

REPORT INFORMATION
  Report Type: Spontaneous
  Country: US (occurrence: US)
  Receive Date: 20200129
  Receipt Date: 20200129
  Transmission Date: 20200409
  Serious: Yes (Death, Hospitalization, Other)
  Sender: FDA-Public Use
  Company Number: US-HIKMA PHARMACEUTICALS USA INC.-US-H14001-20-00282

PATIENT
  Age: 30 Year
  Sex: Female

DRUGS (7)
  1. POTASSIUM IODIDE. [Concomitant]
     Active Substance: POTASSIUM IODIDE
     Indication: THYROIDECTOMY
     Route: 065
  2. RITUXIMAB. [Concomitant]
     Active Substance: RITUXIMAB
     Indication: THYROIDECTOMY
     Route: 065
  3. PREDNISONE. [Suspect]
     Active Substance: PREDNISONE
     Indication: THYROIDECTOMY
     Route: 065
  4. CHOLESTYRAMINE. [Concomitant]
     Active Substance: CHOLESTYRAMINE
     Indication: THYROIDECTOMY
     Route: 065
  5. CYCLOPHOSPHAMIDE. [Suspect]
     Active Substance: CYCLOPHOSPHAMIDE
     Indication: THYROIDECTOMY
     Route: 065
  6. PROPRANOLOL [Concomitant]
     Active Substance: PROPRANOLOL HYDROCHLORIDE
     Indication: THYROIDECTOMY
     Route: 065
  7. PROPYLTHIOURACIL. [Concomitant]
     Active Substance: PROPYLTHIOURACIL
     Indication: THYROIDECTOMY
     Route: 065

REACTIONS (6)
  - Acute respiratory distress syndrome [Fatal]
  - Immunodeficiency [Unknown]
  - Pneumonia [Unknown]
  - Platelet count decreased [Recovering/Resolving]
  - Haemothorax [Unknown]
  - Sepsis [Unknown]
